FAERS Safety Report 6883604-6 (Version None)
Quarter: 2010Q3

REPORT INFORMATION
  Report Type: 
  Country: None (occurrence: None)
  Receive Date: 20100729
  Receipt Date: 20100721
  Transmission Date: 20110219
  Serious: Yes (Hospitalization)
  Sender: FDA-Public Use
  Company Number: A0775458A

PATIENT
  Sex: Female

DRUGS (1)
  1. AVANDIA [Suspect]
     Dosage: 8MG PER DAY
     Route: 048
     Dates: start: 20041016, end: 20070221

REACTIONS (3)
  - CARDIAC DISORDER [None]
  - CORONARY ARTERY BYPASS [None]
  - POST PROCEDURAL COMPLICATION [None]
